FAERS Safety Report 18001222 (Version 3)
Quarter: 2020Q3

REPORT INFORMATION
  Report Type: Report from Study
  Country: AU (occurrence: AU)
  Receive Date: 20200709
  Receipt Date: 20200728
  Transmission Date: 20201103
  Serious: Yes (Other)
  Sender: FDA-Public Use
  Company Number: AU-PFIZER INC-2020258292

PATIENT
  Sex: Male
  Weight: 16.2 kg

DRUGS (23)
  1. CHLORHEXIDINE [CHLORHEXIDINE DIACETATE] [Concomitant]
     Indication: PROPHYLAXIS
     Dosage: 5 ML, 2X/DAY
     Dates: start: 20200604
  2. COLOXYL [POLOXALCOL] [Concomitant]
     Active Substance: POLOXAMER 188
     Indication: LAXATIVE SUPPORTIVE CARE
     Dosage: UNK, AS NEEDED (0.8 PUFFS)
     Dates: start: 20200611, end: 20200624
  3. FENTANIL [Concomitant]
     Active Substance: FENTANYL
     Indication: MUCOSAL INFLAMMATION
     Dosage: UNK (INFUSION WITH VARIABLE RATES)
     Dates: start: 20200625
  4. MIDAZOLAM. [Concomitant]
     Active Substance: MIDAZOLAM
     Indication: SEDATION
     Dosage: 3.2 MG, AS NEEDED (S.O.S)
     Dates: start: 20200627, end: 20200627
  5. MITOXANTRONE HCL [Suspect]
     Active Substance: MITOXANTRONE HYDROCHLORIDE
     Indication: ACUTE MYELOID LEUKAEMIA
     Dosage: 8 MG/M2, 1X/DAY
     Route: 042
     Dates: start: 20200602, end: 20200605
  6. PARACETAMOL [Concomitant]
     Active Substance: ACETAMINOPHEN
     Indication: PAIN
     Dosage: 240 MG, 4X/DAY
     Dates: start: 20200607
  7. BACTRIM [Concomitant]
     Active Substance: SULFAMETHOXAZOLE\TRIMETHOPRIM
     Indication: PROPHYLAXIS
     Dosage: 40 MG (TWICE DAILY ON SATURDAY+ SUNDAY ONLY)
     Dates: start: 20200613
  8. CHLORVESCENT [POTASSIUM CHLORIDE] [Concomitant]
     Indication: HYPOKALAEMIA
     Dosage: 1 DF (1 TABLET (S.O.S))
     Dates: start: 20200624, end: 20200624
  9. CETIRIZINE [Concomitant]
     Active Substance: CETIRIZINE HYDROCHLORIDE
     Indication: HYPERSENSITIVITY
     Dosage: 2.5 MG, AS NEEDED
     Dates: start: 20200628
  10. NIFEDIPINE. [Concomitant]
     Active Substance: NIFEDIPINE
     Indication: HYPERTENSION
     Dosage: 4 MG, AS NEEDED
     Dates: start: 20200629
  11. AMBISOME [Concomitant]
     Active Substance: AMPHOTERICIN B
     Indication: ANTIFUNGAL PROPHYLAXIS
     Dosage: 50 MG (3 TIMES A WEEK)
     Dates: start: 20200615, end: 20200626
  12. AUGMENTINE [AMOXICILLIN;CLAVULANIC ACID] [Concomitant]
     Active Substance: AMOXICILLIN\CLAVULANIC ACID
     Indication: ANTIBIOTIC THERAPY
     Dosage: 360 MG, 2X/DAY
     Dates: start: 20200618, end: 20200620
  13. CIPROFLOXACIN. [Concomitant]
     Active Substance: CIPROFLOXACIN
     Indication: ANTIBIOTIC THERAPY
     Dosage: 200 MG, 3X/DAY
     Dates: start: 20200618, end: 20200620
  14. TRAMADOL. [Concomitant]
     Active Substance: TRAMADOL
     Indication: PAIN
     Dosage: 16 MG, 4X/DAY
     Dates: start: 20200626
  15. VORICONAZOLE. [Concomitant]
     Active Substance: VORICONAZOLE
     Indication: ANTIFUNGAL PROPHYLAXIS
     Dosage: 130 MG, 2X/DAY
     Dates: start: 20200626
  16. ACICLOVIR [Concomitant]
     Active Substance: ACYCLOVIR
     Indication: HERPES SIMPLEX
     Dosage: 320 MG, 4X/DAY
     Dates: start: 20200626, end: 20200629
  17. OXYCODONE [Concomitant]
     Active Substance: OXYCODONE
     Indication: PAIN
     Dosage: 2 MG, AS NEEDED
     Dates: start: 20200624, end: 20200625
  18. GEMTUZUMAB OZOGAMICIN [Suspect]
     Active Substance: GEMTUZUMAB OZOGAMICIN
     Indication: ACUTE MYELOID LEUKAEMIA
     Dosage: 2 MG (OTHER)
     Route: 042
     Dates: start: 20200605, end: 20200611
  19. METOCLOPRAMIDE. [Concomitant]
     Active Substance: METOCLOPRAMIDE
     Indication: NAUSEA
     Dosage: 2 MG, 3X/DAY
     Dates: start: 20200606
  20. VANCOMYCIN [Concomitant]
     Active Substance: VANCOMYCIN
     Indication: FEBRILE NEUTROPENIA
     Dosage: 300 MG, 2X/DAY
     Dates: start: 20200613
  21. FRUSEMIDE [FUROSEMIDE] [Concomitant]
     Active Substance: FUROSEMIDE
     Indication: DIURETIC THERAPY
     Dosage: 8 MG, AS NEEDED (S.O.S)
     Dates: start: 20200625, end: 20200625
  22. ONDANSETRON [Concomitant]
     Active Substance: ONDANSETRON
     Indication: NAUSEA
     Dosage: 2 MG, 4X/DAY
     Dates: start: 20200602
  23. TAZOCIN [Concomitant]
     Active Substance: PIPERACILLIN SODIUM\TAZOBACTAM SODIUM
     Indication: FEBRILE NEUTROPENIA
     Dosage: 1.6 G, 4X/DAY
     Dates: start: 20200611

REACTIONS (3)
  - Sepsis [Not Recovered/Not Resolved]
  - Seizure [Not Recovered/Not Resolved]
  - Meningitis [Not Recovered/Not Resolved]

NARRATIVE: CASE EVENT DATE: 20200630
